FAERS Safety Report 10367774 (Version 1)
Quarter: 2014Q1

REPORT INFORMATION
  Report Type: Spontaneous
  Country: US (occurrence: None)
  Receive Date: 20140306
  Receipt Date: 20140306
  Transmission Date: 20141002
  Serious: Yes (Other)
  Sender: FDA-Public Use
  Company Number: 163-21880-12111121

PATIENT
  Age: 57 Year
  Sex: Female

DRUGS (7)
  1. REVLIMID (LENALIDOMIDE) (10 MILLIGRAM, CAPSULES) [Suspect]
     Indication: PLASMA CELL MYELOMA
     Dosage: 10 MG, 14 IN 21 D, PO
     Route: 048
     Dates: start: 20121011, end: 201210
  2. ALLOPURINOL (ALLOPURINOL) [Concomitant]
  3. RANITIDINE (RANITIDINE) [Concomitant]
  4. EZETIMIBE (EZETIMIBE) [Concomitant]
  5. SIMVASTATIN (SIMVASTATIN) [Concomitant]
  6. CETRIZINE (CETIRIZINE HYDROCHLORIDE) [Concomitant]
  7. DEXAMETHASONE (DEXAMETHASONE) [Concomitant]

REACTIONS (3)
  - Hepatic failure [None]
  - Pyrexia [None]
  - Rash [None]
